FAERS Safety Report 9053743 (Version 1)
Quarter: 2013Q1

REPORT INFORMATION
  Report Type: Report from Study
  Country: CA (occurrence: CA)
  Receive Date: 20130208
  Receipt Date: 20130208
  Transmission Date: 20140127
  Serious: Yes (Life-Threatening, Hospitalization, Other)
  Sender: FDA-Public Use
  Company Number: PHHY2010CA09014

PATIENT
  Sex: Female

DRUGS (17)
  1. CLOZARIL [Suspect]
     Indication: SCHIZOPHRENIA
     Dosage: 600 MG, QD
     Route: 048
     Dates: start: 19991228
  2. CLOZARIL [Suspect]
     Dosage: 500 MG, QHS
     Route: 048
     Dates: start: 20130124
  3. PARLODEL [Concomitant]
     Dosage: 2.5 MG, QHS
     Route: 048
     Dates: start: 20130124
  4. TYLENOL [Concomitant]
     Dosage: 650 MG, PRN
     Route: 048
     Dates: start: 20130124
  5. ADVAGRAF [Concomitant]
     Dosage: 8 MG, QD
     Route: 048
     Dates: start: 20130124
  6. ARANESP [Concomitant]
     Dosage: 30 UG, QW
     Route: 058
     Dates: start: 20130124
  7. CALCITRIOL [Concomitant]
     Dosage: 5 UG, QD
     Route: 048
     Dates: start: 20130124
  8. CALCIUM CARBONATE [Concomitant]
     Dosage: 500 MG, BID
     Route: 048
     Dates: start: 20130124
  9. DOCUSATE SODIUM [Concomitant]
     Dosage: 200 MG, BID
     Route: 048
     Dates: start: 20130129
  10. SYNTHROID [Concomitant]
     Dosage: 75 UG, QD
     Route: 048
     Dates: start: 20130124
  11. MG-KONSENTRAATTI [Concomitant]
     Dosage: 500 MG, BID
     Route: 048
     Dates: start: 20130129
  12. MYFORTIC [Concomitant]
     Dosage: 540 MG, BID
     Route: 048
     Dates: start: 20130124
  13. NYSTACID [Concomitant]
     Dosage: 500000 U, QID
     Route: 048
  14. SENOKOT                                 /UNK/ [Concomitant]
     Dosage: 86 MG, BID
     Route: 048
     Dates: start: 20130129
  15. SEPTRA [Concomitant]
     Dosage: 0.5 DF, QD
     Route: 048
     Dates: start: 20130124
  16. VALCYTE [Concomitant]
     Dosage: 450 MG, Q2DAYS
     Route: 048
     Dates: start: 20130124
  17. NATURAL VITAMIN D [Concomitant]
     Dosage: 10000 U, QW
     Route: 048
     Dates: start: 20130124

REACTIONS (2)
  - Renal failure [Unknown]
  - Toxicity to various agents [Unknown]
